FAERS Safety Report 9404559 (Version 1)
Quarter: 2013Q3

REPORT INFORMATION
  Report Type: Spontaneous
  Country: US (occurrence: US)
  Receive Date: 20130717
  Receipt Date: 20130717
  Transmission Date: 20140515
  Serious: No
  Sender: FDA-Public Use
  Company Number: US-BAYER-2013-086387

PATIENT
  Age: 90 Year
  Sex: Female
  Weight: 54.42 kg

DRUGS (4)
  1. ALEVE CAPLET [Suspect]
     Indication: ASTHENIA
     Dosage: 1 DF, UNK
     Route: 048
     Dates: start: 201305
  2. SYNTHROID [Concomitant]
  3. BAYER ASPIRIN REGIMEN ADULT LOW STRENGTH [Concomitant]
  4. EYEWASH [Concomitant]

REACTIONS (5)
  - Drug ineffective [None]
  - Inappropriate schedule of drug administration [None]
  - Incorrect drug administration duration [None]
  - Off label use [None]
  - Dysgeusia [Recovered/Resolved]
